FAERS Safety Report 4734465-2 (Version None)
Quarter: 2005Q3

REPORT INFORMATION
  Report Type: 
  Country: None (occurrence: None)
  Receive Date: 20050729
  Receipt Date: 20050714
  Transmission Date: 20060218
  Serious: Yes (Hospitalization)
  Sender: FDA-Public Use
  Company Number: 2005-BP-10878RO

PATIENT
  Age: 47 Year
  Sex: Male

DRUGS (15)
  1. PREDNISONE TAB [Suspect]
     Indication: PROPHYLAXIS AGAINST TRANSPLANT REJECTION
     Dosage: 25 MG/DAY, PO
     Route: 048
     Dates: start: 20050506
  2. BELATACEPT [Suspect]
     Indication: PROPHYLAXIS AGAINST TRANSPLANT REJECTION
     Dosage: IV
     Route: 042
     Dates: start: 20050503
  3. MYCOPHENOLATE MOFETIL (MYCOPHENOLATE MOFETIL) [Suspect]
     Indication: PROPHYLAXIS AGAINST TRANSPLANT REJECTION
     Dosage: 2000 MG/DAY, PO
     Route: 048
     Dates: start: 20050503
  4. METOPROLOL TARTRATE [Concomitant]
  5. BACTRIM [Concomitant]
  6. CLONIDINE [Concomitant]
  7. ZANTAC [Concomitant]
  8. PLAVIX [Concomitant]
  9. ASPIRIN [Concomitant]
  10. NYSTATIN [Concomitant]
  11. ADALAT [Concomitant]
  12. EFFEXOR [Concomitant]
  13. PLENDIL [Concomitant]
  14. DEPAKOTE [Concomitant]
  15. TRACLEER [Concomitant]

REACTIONS (5)
  - FEMORAL ARTERIAL STENOSIS [None]
  - ILIAC ARTERY STENOSIS [None]
  - INTERMITTENT CLAUDICATION [None]
  - LIMB DISCOMFORT [None]
  - POST PROCEDURAL COMPLICATION [None]
